FAERS Safety Report 7034747-8 (Version None)
Quarter: 2010Q4

REPORT INFORMATION
  Report Type: 
  Country: None (occurrence: None)
  Receive Date: 20101008
  Receipt Date: 20100928
  Transmission Date: 20110411
  Serious: Yes (Other)
  Sender: FDA-Public Use
  Company Number: PHHY2010BR32902

PATIENT
  Sex: Female

DRUGS (3)
  1. DIOVAN [Suspect]
     Dosage: 1 TABLET (80 MG) AT NIGHT AND WHEN IT WAS NECESSARY SHE USE MORE 1 TABLET,AROUND 45 TABLETS
  2. DIOVAN [Suspect]
     Dosage: 160 MG, UNK
  3. DIOVAN [Suspect]
     Dosage: 2 TABLETS (40 MG) A DAY.

REACTIONS (13)
  - ANAEMIA [None]
  - CONFUSIONAL STATE [None]
  - DRUG INEFFECTIVE [None]
  - HEADACHE [None]
  - HEPATIC CIRRHOSIS [None]
  - HEPATITIS C [None]
  - HYPERTENSION [None]
  - HYPOTENSION [None]
  - IMPATIENCE [None]
  - IRRITABILITY [None]
  - LEUKOPENIA [None]
  - THROMBOCYTOPENIA [None]
  - WEIGHT DECREASED [None]
